FAERS Safety Report 7716621-4 (Version None)
Quarter: 2011Q3

REPORT INFORMATION
  Report Type: 
  Country: None (occurrence: None)
  Receive Date: 20110829
  Receipt Date: 20110824
  Transmission Date: 20111222
  Serious: Yes (Other)
  Sender: FDA-Public Use
  Company Number: BR-PFIZER INC-2011124673

PATIENT
  Age: 52 Year
  Sex: Female
  Weight: 78 kg

DRUGS (4)
  1. HYDROCHLOROTHIAZIDE [Concomitant]
     Indication: BLOOD PRESSURE INCREASED
     Dosage: UNK
  2. ENALAPRIL [Concomitant]
     Indication: BLOOD PRESSURE INCREASED
     Dosage: UNK
  3. VARENICLINE TARTRATE [Suspect]
     Indication: TOBACCO USER
     Dosage: UNK
     Route: 048
     Dates: start: 20110525, end: 20110101
  4. VARENICLINE TARTRATE [Suspect]
     Dosage: 1 MG, UNSPECIFIED FREQUENCY
     Route: 048
     Dates: start: 20110101, end: 20110101

REACTIONS (4)
  - NERVOUSNESS [None]
  - HOMICIDAL IDEATION [None]
  - SUICIDAL IDEATION [None]
  - WEIGHT DECREASED [None]
